FAERS Safety Report 22314607 (Version 1)
Quarter: 2023Q2

REPORT INFORMATION
  Report Type: Spontaneous
  Country: US (occurrence: None)
  Receive Date: 20230511
  Receipt Date: 20230511
  Transmission Date: 20230721
  Serious: Yes (Death)
  Sender: FDA-Public Use
  Company Number: None

PATIENT
  Sex: Female

DRUGS (16)
  1. ENVARSUS XR [Suspect]
     Active Substance: TACROLIMUS
     Indication: Liver transplant
     Dosage: FREQUENCY : 3 TIMES A DAY;?
     Route: 048
     Dates: start: 20180803
  2. ALENDRONATE [Concomitant]
  3. CELLCEPT [Concomitant]
     Active Substance: MYCOPHENOLATE MOFETIL
  4. CENTRUM TAB SILVER [Concomitant]
  5. GENTEAL DRO OPTH [Concomitant]
  6. LASIX [Concomitant]
  7. LOSARTAN POTASSIUM [Concomitant]
     Active Substance: LOSARTAN POTASSIUM
  8. METOPROLOL SUCCINATE [Concomitant]
     Active Substance: METOPROLOL SUCCINATE
  9. MULTI-B-PLUS [Concomitant]
  10. MYCOPHENOLIC ACID [Concomitant]
     Active Substance: MYCOPHENOLIC ACID
  11. OMEPRAZOLE [Concomitant]
     Active Substance: OMEPRAZOLE
  12. OXYBUTYNIN [Concomitant]
     Active Substance: OXYBUTYNIN
  13. PROGRAF [Concomitant]
     Active Substance: TACROLIMUS
  14. RIFAMPIN [Concomitant]
     Active Substance: RIFAMPIN
  15. HYDROCHLOROTHIAZIDE\TRIAMTERENE [Concomitant]
     Active Substance: HYDROCHLOROTHIAZIDE\TRIAMTERENE
  16. URSODIOL [Concomitant]
     Active Substance: URSODIOL

REACTIONS (1)
  - Death [None]
